FAERS Safety Report 10357543 (Version 1)
Quarter: 2014Q3

REPORT INFORMATION
  Report Type: Spontaneous
  Country: US (occurrence: None)
  Receive Date: 20140730
  Receipt Date: 20140730
  Transmission Date: 20150326
  Serious: No
  Sender: FDA-Public Use
  Company Number: None

PATIENT
  Sex: Female

DRUGS (4)
  1. FOSAMAX [Suspect]
     Active Substance: ALENDRONATE SODIUM
     Indication: OSTEOPENIA
     Route: 048
  2. ATIVAN NOCHR ANELGESIC [Concomitant]
  3. MIRILAX [Concomitant]
  4. SEDDACOT [Concomitant]

REACTIONS (1)
  - Oropharyngeal pain [None]
